FAERS Safety Report 17256789 (Version 2)
Quarter: 2020Q3

REPORT INFORMATION
  Report Type: Report from Study
  Country: CA (occurrence: CA)
  Receive Date: 20200110
  Receipt Date: 20200731
  Transmission Date: 20201102
  Serious: Yes (Other)
  Sender: FDA-Public Use
  Company Number: CA-UCBSA-2020000923

PATIENT
  Age: 0 Year
  Sex: Male
  Weight: 2.09 kg

DRUGS (1)
  1. CERTOLIZUMAB PEGOL AUTOCLICKS [Suspect]
     Active Substance: CERTOLIZUMAB PEGOL
     Indication: ANKYLOSING SPONDYLITIS
     Dosage: 200 MILLIGRAM, EV 2 WEEKS(QOW)
     Route: 050

REACTIONS (4)
  - Low birth weight baby [Unknown]
  - Small for dates baby [Unknown]
  - Premature baby [Unknown]
  - Paternal exposure before pregnancy [Unknown]

NARRATIVE: CASE EVENT DATE: 2019
